FAERS Safety Report 23738598 (Version 1)
Quarter: 2024Q2

REPORT INFORMATION
  Report Type: Spontaneous
  Country: FR (occurrence: None)
  Receive Date: 20240412
  Receipt Date: 20240412
  Transmission Date: 20240716
  Serious: Yes (Hospitalization)
  Sender: FDA-Public Use
  Company Number: FR-ROCHE-3541870

PATIENT
  Age: 87 Year
  Sex: Female

DRUGS (4)
  1. TOCILIZUMAB [Suspect]
     Active Substance: TOCILIZUMAB
     Indication: Polymyalgia rheumatica
     Dosage: LAST DOSE RECEIVED ON 28/MAR/2024
     Route: 058
     Dates: start: 20240321
  2. POTASSIUM CHLORIDE [Concomitant]
     Active Substance: POTASSIUM CHLORIDE
  3. SODIUM CHLORIDE [Concomitant]
     Active Substance: SODIUM CHLORIDE
  4. AMIODARONE [Concomitant]
     Active Substance: AMIODARONE

REACTIONS (8)
  - Off label use [Unknown]
  - Disorientation [Unknown]
  - Dehydration [Unknown]
  - Malaise [Unknown]
  - Confusional state [Unknown]
  - Blood pressure increased [Unknown]
  - Heart rate increased [Unknown]
  - Myelocyte count increased [Unknown]

NARRATIVE: CASE EVENT DATE: 20240322
